FAERS Safety Report 17841485 (Version 1)
Quarter: 2020Q2

REPORT INFORMATION
  Report Type: Spontaneous
  Country: US (occurrence: US)
  Receive Date: 20200529
  Receipt Date: 20200529
  Transmission Date: 20200714
  Serious: Yes (Hospitalization, Other)
  Sender: FDA-Public Use
  Company Number: US-009507513-2005USA009086

PATIENT
  Age: 72 Year
  Sex: Female

DRUGS (19)
  1. SPIRONOLACTONE. [Concomitant]
     Active Substance: SPIRONOLACTONE
  2. PRINIVIL [Concomitant]
     Active Substance: LISINOPRIL
  3. METOPROLOL. [Concomitant]
     Active Substance: METOPROLOL
  4. ASPIRIN. [Concomitant]
     Active Substance: ASPIRIN
  5. TYLENOL [Concomitant]
     Active Substance: ACETAMINOPHEN
  6. DIGOXIN. [Concomitant]
     Active Substance: DIGOXIN
  7. VOLTAREN [Concomitant]
     Active Substance: DICLOFENAC SODIUM
  8. SOLIFENACIN SUCCINATE. [Concomitant]
     Active Substance: SOLIFENACIN SUCCINATE
  9. WARFARIN [Concomitant]
     Active Substance: WARFARIN
  10. GABAPENTIN. [Concomitant]
     Active Substance: GABAPENTIN
  11. LEVOTHYROXINE SODIUM. [Concomitant]
     Active Substance: LEVOTHYROXINE SODIUM
  12. TRAZODONE HYDROCHLORIDE. [Concomitant]
     Active Substance: TRAZODONE HYDROCHLORIDE
  13. DOK [Concomitant]
     Active Substance: DOCUSATE SODIUM
  14. JANUVIA [Suspect]
     Active Substance: SITAGLIPTIN PHOSPHATE
     Indication: DIABETES MELLITUS
     Route: 048
  15. EFFEXOR [Concomitant]
     Active Substance: VENLAFAXINE HYDROCHLORIDE
  16. TRAMADOL HYDROCHLORIDE. [Concomitant]
     Active Substance: TRAMADOL HYDROCHLORIDE
  17. MELATONIN [Concomitant]
     Active Substance: MELATONIN
  18. HYDROCODONE [Concomitant]
     Active Substance: HYDROCODONE
  19. VITAMINS (UNSPECIFIED) [Concomitant]
     Active Substance: VITAMINS

REACTIONS (8)
  - Product dose omission [Unknown]
  - Skin infection [Recovering/Resolving]
  - Weight increased [Recovering/Resolving]
  - Asthenia [Recovering/Resolving]
  - Localised infection [Recovering/Resolving]
  - Intracardiac thrombus [Unknown]
  - Inappropriate schedule of product administration [Unknown]
  - Heart valve operation [Unknown]

NARRATIVE: CASE EVENT DATE: 2019
